APPROVED DRUG PRODUCT: LORYNA
Active Ingredient: DROSPIRENONE; ETHINYL ESTRADIOL
Strength: 3MG;0.02MG
Dosage Form/Route: TABLET;ORAL
Application: A079221 | Product #001 | TE Code: AB
Applicant: XIROMED PHARMA ESPANA SL
Approved: Mar 28, 2011 | RLD: No | RS: No | Type: RX